FAERS Safety Report 10529975 (Version 2)
Quarter: 2014Q4

REPORT INFORMATION
  Report Type: Spontaneous
  Country: CA (occurrence: None)
  Receive Date: 20130816
  Receipt Date: 20141015
  Transmission Date: 20150528
  Serious: Yes (Life-Threatening, Hospitalization)
  Sender: FDA-Public Use
  Company Number: 1713747-2013-99932

PATIENT
  Sex: Male

DRUGS (5)
  1. DIALYZER [Concomitant]
  2. SALINE CONCENTRATES [Concomitant]
  3. BLOODLINES [Concomitant]
  4. FRESENIUS 2008K@HOME HEMODIALYSIS MACHINE [Concomitant]
  5. 0.9% SODIUM CHLORIDE [Suspect]
     Active Substance: SODIUM CHLORIDE
     Indication: CHRONIC KIDNEY DISEASE
     Dates: start: 20130712

REACTIONS (2)
  - Haemodialysis [None]
  - Adverse event [None]

NARRATIVE: CASE EVENT DATE: 20130712
